FAERS Safety Report 8104730-X (Version None)
Quarter: 2012Q1

REPORT INFORMATION
  Report Type: 
  Country: None (occurrence: None)
  Receive Date: 20120130
  Receipt Date: 20120124
  Transmission Date: 20120608
  Serious: Yes (Other)
  Sender: FDA-Public Use
  Company Number: US-PFIZER INC-2012020001

PATIENT
  Sex: Female
  Weight: 72.562 kg

DRUGS (6)
  1. PRISTIQ [Suspect]
     Dosage: 100 MG, 1X/DAY
     Route: 048
  2. ALPRAZOLAM [Concomitant]
     Dosage: 0.5 MG, 4X/DAY
  3. EFFEXOR [Concomitant]
     Dosage: 300 MG, 1X/DAY
  4. SEROQUEL [Concomitant]
     Dosage: UNK
  5. LAMICTAL [Concomitant]
     Dosage: 300 MG, 1X/DAY
  6. PRISTIQ [Suspect]
     Indication: BIPOLAR DISORDER
     Dosage: 50 MG, 1X/DAY
     Route: 048
     Dates: start: 20060101

REACTIONS (4)
  - DEPRESSION [None]
  - PANIC ATTACK [None]
  - EMOTIONAL DISORDER [None]
  - FEELING ABNORMAL [None]
